FAERS Safety Report 6915021-4 (Version None)
Quarter: 2010Q3

REPORT INFORMATION
  Report Type: 
  Country: None (occurrence: None)
  Receive Date: 20100809
  Receipt Date: 20100802
  Transmission Date: 20110219
  Serious: Yes (Death, Other)
  Sender: FDA-Public Use
  Company Number: US-ROCHE-719171

PATIENT
  Age: 10 Year
  Sex: Male

DRUGS (9)
  1. MYCOPHENOLATE MOFETIL [Suspect]
     Indication: PROPHYLAXIS AGAINST GRAFT VERSUS HOST DISEASE
     Route: 065
  2. RITUXIMAB [Suspect]
     Indication: PROPHYLAXIS AGAINST GRAFT VERSUS HOST DISEASE
     Route: 065
  3. METHYLPREDNISOLONE [Suspect]
     Indication: PROPHYLAXIS AGAINST GRAFT VERSUS HOST DISEASE
     Route: 065
  4. CYCLOPHOSPHAMIDE [Suspect]
     Route: 065
  5. CYCLOPHOSPHAMIDE [Suspect]
     Route: 065
  6. THIOTEPA [Suspect]
     Route: 065
  7. ETOPOSIDE [Concomitant]
  8. NELARABINE [Concomitant]
  9. METHOTREXATE [Concomitant]
     Dosage: DOSING: 5 G/M2

REACTIONS (9)
  - ADENOVIRUS INFECTION [None]
  - COMPLICATIONS OF TRANSPLANT SURGERY [None]
  - GRAFT VERSUS HOST DISEASE [None]
  - HAEMORRHAGE [None]
  - LOCAL SWELLING [None]
  - MUCOSAL INFLAMMATION [None]
  - RENAL FAILURE [None]
  - SUPERIOR VENA CAVAL OCCLUSION [None]
  - VIITH NERVE PARALYSIS [None]
